FAERS Safety Report 10258579 (Version 1)
Quarter: 2014Q2

REPORT INFORMATION
  Report Type: Spontaneous
  Country: US (occurrence: None)
  Receive Date: 20140624
  Receipt Date: 20140624
  Transmission Date: 20141212
  Serious: No
  Sender: FDA-Public Use
  Company Number: None

PATIENT
  Age: 47 Year
  Sex: Female
  Weight: 68.04 kg

DRUGS (1)
  1. PAXILCR CR [Suspect]
     Indication: PREMENSTRUAL DYSPHORIC DISORDER
     Dosage: 1/2 PILL ONCE DAILY TAKEN BY MOUTH
     Route: 048
     Dates: start: 20040630, end: 20140529

REACTIONS (4)
  - Disturbance in attention [None]
  - Paraesthesia [None]
  - Tinnitus [None]
  - Vertigo [None]
